FAERS Safety Report 18318438 (Version 1)
Quarter: 2020Q3

REPORT INFORMATION
  Report Type: Other
  Country: UY (occurrence: UY)
  Receive Date: 20200928
  Receipt Date: 20200928
  Transmission Date: 20201103
  Serious: Yes (Other)
  Sender: FDA-Public Use
  Company Number: UY-ROCHE-2681134

PATIENT
  Age: 52 Year

DRUGS (1)
  1. VEMURAFENIB. [Suspect]
     Active Substance: VEMURAFENIB
     Indication: MALIGNANT MELANOMA
     Route: 048

REACTIONS (2)
  - Melanocytic naevus [Unknown]
  - Malignant melanoma in situ [Unknown]
